FAERS Safety Report 11501020 (Version 1)
Quarter: 2015Q3

REPORT INFORMATION
  Report Type: Spontaneous
  Country: US (occurrence: US)
  Receive Date: 20150903
  Receipt Date: 20150903
  Transmission Date: 20151125
  Serious: No
  Sender: FDA-Public Use
  Company Number: US-ELI_LILLY_AND_COMPANY-US200901004155

PATIENT
  Age: 60 Year
  Sex: Male

DRUGS (8)
  1. TEMAZEPAM. [Concomitant]
     Active Substance: TEMAZEPAM
  2. CLOPIDOGREL [Concomitant]
     Active Substance: CLOPIDOGREL BISULFATE
  3. LANTUS [Concomitant]
     Active Substance: INSULIN GLARGINE
     Indication: DIABETES MELLITUS INADEQUATE CONTROL
     Dosage: 30 U, EACH EVENING
     Route: 058
     Dates: start: 1998
  4. CARVEDILOL. [Concomitant]
     Active Substance: CARVEDILOL
  5. SIMVASTATIN. [Concomitant]
     Active Substance: SIMVASTATIN
  6. AMLODIPINE [Concomitant]
     Active Substance: AMLODIPINE BESYLATE
  7. HUMALOG [Suspect]
     Active Substance: INSULIN LISPRO
     Dosage: 5 U, 3/D
  8. SERTRALINE [Concomitant]
     Active Substance: SERTRALINE HYDROCHLORIDE

REACTIONS (3)
  - Diabetes mellitus inadequate control [Unknown]
  - Blood glucose increased [Unknown]
  - Blood glucose decreased [Unknown]

NARRATIVE: CASE EVENT DATE: 20081219
